FAERS Safety Report 4816535-3 (Version None)
Quarter: 2005Q4

REPORT INFORMATION
  Report Type: 
  Country: None (occurrence: None)
  Receive Date: 20051101
  Receipt Date: 20051019
  Transmission Date: 20060501
  Serious: Yes (Hospitalization)
  Sender: FDA-Public Use
  Company Number: PHBS2005TW15481

PATIENT
  Age: 46 Year
  Sex: Female

DRUGS (4)
  1. CALCITONIN [Suspect]
     Indication: OSTEOPOROSIS
     Dosage: 100 IU, QD
     Route: 058
     Dates: start: 20030725
  2. CALCIUM CARBONATE [Concomitant]
     Dosage: 1.5 G, QD
     Route: 048
     Dates: start: 20030725
  3. MAGNESIUM SULFATE [Concomitant]
     Dosage: 10 %, UNK
  4. DIAZEPAM [Concomitant]

REACTIONS (15)
  - BLOOD ALKALINE PHOSPHATASE INCREASED [None]
  - BLOOD CREATININE INCREASED [None]
  - BLOOD GLUCOSE INCREASED [None]
  - BLOOD MAGNESIUM DECREASED [None]
  - BLOOD PHOSPHORUS DECREASED [None]
  - BLOOD POTASSIUM DECREASED [None]
  - BLOOD UREA INCREASED [None]
  - CONVULSION [None]
  - FLUSHING [None]
  - HYPERCALCAEMIA [None]
  - LOSS OF CONSCIOUSNESS [None]
  - NAUSEA [None]
  - RESPIRATORY DISTRESS [None]
  - RESTLESSNESS [None]
  - STUPOR [None]
